FAERS Safety Report 8663030 (Version 2)
Quarter: 2013Q4

REPORT INFORMATION
  Report Type: Spontaneous
  Country: GB (occurrence: GB)
  Receive Date: 20120712
  Receipt Date: 20131108
  Transmission Date: 20140711
  Serious: Yes (Other)
  Sender: FDA-Public Use
  Company Number: GB-009507513-1207GBR001349

PATIENT
  Age: 70 Year
  Sex: Male
  Weight: 97 kg

DRUGS (4)
  1. ZOCOR [Suspect]
     Dosage: 10 MG, UNK
     Route: 048
  2. BISOPROLOL [Concomitant]
     Dosage: UNK
     Dates: start: 20120306, end: 20120513
  3. RAMIPRIL [Concomitant]
     Dosage: UNK
     Dates: start: 20120306, end: 20120513
  4. WARFARIN SODIUM [Concomitant]
     Dosage: UNK
     Dates: start: 20120306, end: 20120513

REACTIONS (2)
  - Confusional state [Recovering/Resolving]
  - Amnesia [Unknown]
